FAERS Safety Report 19381737 (Version 1)
Quarter: 2021Q2

REPORT INFORMATION
  Report Type: Spontaneous
  Country: US (occurrence: US)
  Receive Date: 20210607
  Receipt Date: 20210607
  Transmission Date: 20210717
  Serious: Yes (Other)
  Sender: FDA-Public Use
  Company Number: US-BAYER-2021-148448

PATIENT
  Age: 65 Year
  Sex: Female
  Weight: 61.69 kg

DRUGS (4)
  1. CLARITIN?D 24 HOUR [Suspect]
     Active Substance: LORATADINE\PSEUDOEPHEDRINE SULFATE
     Indication: SINUSITIS
  2. COVID?19 VACCINE NOS. [Suspect]
     Active Substance: COVID-19 VACCINE NOS
     Dosage: SECOND VACCINE
     Dates: start: 20210406
  3. COVID?19 VACCINE NOS. [Suspect]
     Active Substance: COVID-19 VACCINE NOS
     Dosage: UNK
     Dates: start: 20210324
  4. SPIRONOLACTONE. [Concomitant]
     Active Substance: SPIRONOLACTONE
     Indication: HAIR GROWTH ABNORMAL
     Dosage: 25 MG, BID

REACTIONS (6)
  - Visual impairment [Not Recovered/Not Resolved]
  - Drug ineffective [None]
  - Sinusitis [Not Recovered/Not Resolved]
  - Discoloured vomit [None]
  - Dyspepsia [Recovered/Resolved]
  - Deafness transitory [Recovered/Resolved]

NARRATIVE: CASE EVENT DATE: 202103
